FAERS Safety Report 4549277-2 (Version None)
Quarter: 2004Q4

REPORT INFORMATION
  Report Type: 
  Country: None (occurrence: None)
  Receive Date: 20041230
  Receipt Date: 20040602
  Transmission Date: 20050328
  Serious: Yes (Hospitalization, Other)
  Sender: FDA-Public Use
  Company Number: 04-06-0801

PATIENT
  Age: 51 Year
  Sex: Male
  Weight: 77.1115 kg

DRUGS (5)
  1. CLOZAPINE [Suspect]
     Indication: BIPOLAR DISORDER
     Dosage: 100MG TID ORAL
     Route: 048
     Dates: start: 20010813, end: 20040512
  2. CLOZAPINE [Suspect]
     Indication: PSYCHOTIC DISORDER
     Dosage: 100MG TID ORAL
     Route: 048
     Dates: start: 20010813, end: 20040512
  3. THORAZINE [Concomitant]
  4. DEPAKOTE [Concomitant]
  5. COGENTIN [Concomitant]

REACTIONS (1)
  - GRAND MAL CONVULSION [None]
